FAERS Safety Report 21813048 (Version 1)
Quarter: 2023Q1

REPORT INFORMATION
  Report Type: Spontaneous
  Country: US (occurrence: None)
  Receive Date: 20230102
  Receipt Date: 20230102
  Transmission Date: 20230418
  Serious: Yes (Life-Threatening)
  Sender: FDA-Public Use
  Company Number: None

PATIENT
  Age: 35 Year
  Sex: Female
  Weight: 112.5 kg

DRUGS (7)
  1. XYWAV [Suspect]
     Active Substance: CALCIUM OXYBATE\MAGNESIUM OXYBATE\POTASSIUM OXYBATE\SODIUM OXYBATE
     Indication: Hypersomnia
     Dosage: OTHER QUANTITY : 4.5 GRAMS;?OTHER FREQUENCY : TWICE NIGHTLY;?
     Route: 048
     Dates: start: 20221207
  2. SERTRALINE [Concomitant]
     Active Substance: SERTRALINE HYDROCHLORIDE
  3. GUANFACINE [Concomitant]
     Active Substance: GUANFACINE
  4. BUPROPION [Concomitant]
     Active Substance: BUPROPION
  5. MODAFINIL [Concomitant]
     Active Substance: MODAFINIL
  6. VITAMIN D3 [Concomitant]
     Active Substance: CHOLECALCIFEROL
  7. ALLEGRA [Concomitant]
     Active Substance: FEXOFENADINE HYDROCHLORIDE

REACTIONS (6)
  - Sleep talking [None]
  - Dizziness [None]
  - Vomiting [None]
  - Retching [None]
  - Diarrhoea [None]
  - Intentional product use issue [None]

NARRATIVE: CASE EVENT DATE: 20230102
